FAERS Safety Report 5006648-8 (Version None)
Quarter: 2006Q2

REPORT INFORMATION
  Report Type: 
  Country: None (occurrence: None)
  Receive Date: 20060519
  Receipt Date: 20060511
  Transmission Date: 20061013
  Serious: Yes (Other)
  Sender: FDA-Public Use
  Company Number: GB-JNJFOC-20060503008

PATIENT
  Age: 24 Year
  Sex: Female
  Weight: 66 kg

DRUGS (3)
  1. CILEST [Suspect]
     Indication: CONTRACEPTION
     Route: 048
     Dates: start: 20010101, end: 20060301
  2. ECHINACEA [Concomitant]
     Indication: UPPER RESPIRATORY TRACT INFECTION
     Dosage: TAKEN FOR THREE TO FOUR YEARS
     Route: 048
  3. MILK THISTLE SEED [Concomitant]
     Indication: UPPER RESPIRATORY TRACT INFECTION
     Route: 048

REACTIONS (3)
  - DRUG EXPOSURE DURING PREGNANCY [None]
  - FOOD INTERACTION [None]
  - UNINTENDED PREGNANCY [None]
